FAERS Safety Report 9648345 (Version 2)
Quarter: 2013Q4

REPORT INFORMATION
  Report Type: Spontaneous
  Country: DK (occurrence: IT)
  Receive Date: 20131028
  Receipt Date: 20131119
  Transmission Date: 20140711
  Serious: Yes (Life-Threatening, Hospitalization)
  Sender: FDA-Public Use
  Company Number: IT-FRI-1000050520

PATIENT
  Age: 55 Year
  Sex: Male

DRUGS (5)
  1. ESCITALOPRAM [Suspect]
     Indication: MAJOR DEPRESSION
     Dosage: 280 MG AT ONCE
     Route: 048
     Dates: start: 20130919, end: 20130919
  2. DEPAKIN [Suspect]
     Indication: MAJOR DEPRESSION
     Dosage: OVERDOSE: 60 DOSAGE FORMS AT ONCE
     Dates: start: 20130919, end: 20130919
  3. XANAX [Suspect]
     Indication: PRODUCT USED FOR UNKNOWN INDICATION
     Dosage: OVERDOSE: 40 DOSAGE FORMS AT ONCE
     Dates: start: 20130919, end: 20130919
  4. CARDIOASPIRIN [Concomitant]
     Indication: MYOCARDIAL ISCHAEMIA
     Route: 048
  5. TORVAST [Concomitant]
     Indication: MYOCARDIAL ISCHAEMIA
     Route: 048

REACTIONS (2)
  - Overdose [Unknown]
  - Sopor [Unknown]
